FAERS Safety Report 24413614 (Version 1)
Quarter: 2024Q4

REPORT INFORMATION
  Report Type: Other
  Country: US (occurrence: US)
  Receive Date: 20241008
  Receipt Date: 20241008
  Transmission Date: 20250115
  Serious: Yes (Death)
  Sender: B BRAUN
  Company Number: US-B.Braun Medical Inc.-2162661

PATIENT
  Age: 44 Year
  Sex: Male

DRUGS (6)
  1. ACETAMINOPHEN [Suspect]
     Active Substance: ACETAMINOPHEN
     Indication: Oropharyngeal pain
  2. IBUPROFEN [Suspect]
     Active Substance: IBUPROFEN
  3. SODIUM CHLORIDE [Concomitant]
     Active Substance: SODIUM CHLORIDE
  4. IVERMECTIN [Concomitant]
     Active Substance: IVERMECTIN
  5. DOXYCYCLINE [Concomitant]
     Active Substance: DOXYCYCLINE
  6. CEFTRIAXONE [Concomitant]
     Active Substance: CEFTRIAXONE

REACTIONS (3)
  - Drug reaction with eosinophilia and systemic symptoms [Fatal]
  - Off label use [Fatal]
  - Haemophagocytic lymphohistiocytosis [Fatal]
